FAERS Safety Report 17314860 (Version 1)
Quarter: 2020Q1

REPORT INFORMATION
  Report Type: Spontaneous
  Country: US (occurrence: US)
  Receive Date: 20200123
  Receipt Date: 20200123
  Transmission Date: 20200409
  Serious: Yes (Hospitalization, Other)
  Sender: FDA-Public Use
  Company Number: None

PATIENT
  Age: 66 Year
  Sex: Male
  Weight: 87.75 kg

DRUGS (21)
  1. CLONIDINEER [Concomitant]
  2. KLONOPIN [Concomitant]
     Active Substance: CLONAZEPAM
  3. NEXIUM [Concomitant]
     Active Substance: ESOMEPRAZOLE MAGNESIUM
  4. VIT. B12 [Concomitant]
  5. TYLENOL [Concomitant]
     Active Substance: ACETAMINOPHEN
  6. CHLORZOXAZONE. [Concomitant]
     Active Substance: CHLORZOXAZONE
  7. FISH OIL [Concomitant]
     Active Substance: FISH OIL
  8. IRON [Concomitant]
     Active Substance: IRON
  9. VITAMIN B-COMPLEX [Concomitant]
     Active Substance: DEXPANTHENOL\NIACINAMIDE\PYRIDOXINE HYDROCHLORIDE\RIBOFLAVIN 5^-PHOSPHATE SODIUM\THIAMINE HYDROCHLORIDE
  10. TUMERIC/BOSWELLIA [Concomitant]
  11. CELEXA [Concomitant]
     Active Substance: CITALOPRAM HYDROBROMIDE
  12. GINGER. [Concomitant]
     Active Substance: GINGER
  13. MULTI-VIT [Concomitant]
     Active Substance: VITAMINS
  14. TENS UNIT [Concomitant]
  15. VIT D [Concomitant]
     Active Substance: VITAMIN D NOS
  16. ADVIL [Concomitant]
     Active Substance: IBUPROFEN
  17. MAGNESIUM [Concomitant]
     Active Substance: MAGNESIUM
  18. FIBER [Concomitant]
     Active Substance: PSYLLIUM HUSK
  19. INTRANASAL KETAMINE [Suspect]
     Active Substance: KETAMINE
     Indication: BIPOLAR DISORDER
     Dosage: ?          QUANTITY:3 INHALATION(S);?
     Route: 055
  20. RESTASIS [Concomitant]
     Active Substance: CYCLOSPORINE
  21. ZOFRAN [Concomitant]
     Active Substance: ONDANSETRON HYDROCHLORIDE

REACTIONS (16)
  - Delusion [None]
  - Infusion related reaction [None]
  - Hypertension [None]
  - Product use in unapproved indication [None]
  - Suicide attempt [None]
  - Immobile [None]
  - Agitation [None]
  - Drug ineffective [None]
  - Dissociation [None]
  - Visual impairment [None]
  - Disinhibition [None]
  - Hallucination, visual [None]
  - Suicidal ideation [None]
  - Legal problem [None]
  - Depression [None]
  - Product prescribing issue [None]

NARRATIVE: CASE EVENT DATE: 20180204
